FAERS Safety Report 5065620-2 (Version None)
Quarter: 2006Q3

REPORT INFORMATION
  Report Type: 
  Country: None (occurrence: None)
  Receive Date: 20060725
  Receipt Date: 20060418
  Transmission Date: 20061208
  Serious: No
  Sender: FDA-Public Use
  Company Number: ES200607002864

PATIENT
  Age: 60 Year
  Sex: Female

DRUGS (2)
  1. ZYPREXA [Suspect]
     Dosage: 10 MG,
     Dates: start: 20050101, end: 20050101
  2. ABILIFY [Concomitant]

REACTIONS (3)
  - ANAEMIA [None]
  - PANCYTOPENIA [None]
  - PYREXIA [None]
